FAERS Safety Report 18814235 (Version 1)
Quarter: 2021Q1

REPORT INFORMATION
  Report Type: Spontaneous
  Country: CN (occurrence: CN)
  Receive Date: 20210201
  Receipt Date: 20210201
  Transmission Date: 20210419
  Serious: Yes (Other)
  Sender: FDA-Public Use
  Company Number: CN-LUPIN PHARMACEUTICALS INC.-2021-00825

PATIENT
  Age: 50 Year
  Sex: Female

DRUGS (9)
  1. HYDROXYCHLOROQUINE [Suspect]
     Active Substance: HYDROXYCHLOROQUINE
     Dosage: 200 MILLIGRAM, BIW ON THE FOLLOWING DAY
     Route: 065
     Dates: end: 20200303
  2. HYDROXYCHLOROQUINE [Suspect]
     Active Substance: HYDROXYCHLOROQUINE
     Dosage: 400 MILLIGRAM, BIW ON THE FIRST DAY
     Route: 065
     Dates: start: 20200421
  3. HYDROXYCHLOROQUINE [Suspect]
     Active Substance: HYDROXYCHLOROQUINE
     Indication: COVID-19
     Dosage: 400 MILLIGRAM, BIW ON THE FIRST DAY
     Route: 065
     Dates: start: 20200224
  4. THYMALFASIN [Suspect]
     Active Substance: THYMALFASIN
     Indication: COVID-19
     Dosage: 1.6 MILLIGRAM, TWICE IN WEEK
     Route: 065
     Dates: start: 20200406, end: 20200509
  5. INTERFERON ALFA 2B [Suspect]
     Active Substance: INTERFERON ALFA-2B
     Dosage: 500000 UNIT, TWICE IN WEEK
     Route: 065
     Dates: start: 20200515, end: 20200703
  6. LOPINAVIR/RITONAVIR [Suspect]
     Active Substance: LOPINAVIR\RITONAVIR
     Indication: COVID-19
     Dosage: 2 DOSAGE FORM, TWICE IN WEEK
     Route: 065
     Dates: start: 20200310, end: 20200320
  7. HYDROXYCHLOROQUINE [Suspect]
     Active Substance: HYDROXYCHLOROQUINE
     Dosage: 200 MILLIGRAM, BIW ON THE FOLLOWING DAY
     Route: 065
     Dates: end: 20200423
  8. INTERFERON ALFA 2B [Suspect]
     Active Substance: INTERFERON ALFA-2B
     Indication: COVID-19
     Dosage: 500000 UNIT, TWICE IN WEEK
     Route: 065
     Dates: start: 20200420, end: 20200509
  9. ARBIDOL [Suspect]
     Active Substance: UMIFENOVIR
     Indication: COVID-19
     Dosage: 200 GRAM, TWICE IN WEEK
     Route: 065
     Dates: start: 20200222, end: 20200302

REACTIONS (1)
  - Off label use [Unknown]

NARRATIVE: CASE EVENT DATE: 20200222
